FAERS Safety Report 18628082 (Version 1)
Quarter: 2020Q4

REPORT INFORMATION
  Report Type: Spontaneous
  Country: US (occurrence: US)
  Receive Date: 20201217
  Receipt Date: 20201217
  Transmission Date: 20210114
  Serious: Yes (Hospitalization)
  Sender: FDA-Public Use
  Company Number: None

PATIENT
  Age: 69 Year
  Sex: Male

DRUGS (9)
  1. ZETIA [Concomitant]
     Active Substance: EZETIMIBE
  2. ESBRIET [Suspect]
     Active Substance: PIRFENIDONE
     Indication: IDIOPATHIC PULMONARY FIBROSIS
     Route: 048
     Dates: start: 20190927
  3. ISOSORBIDE MONO ER [Concomitant]
  4. LIPITOR [Concomitant]
     Active Substance: ATORVASTATIN CALCIUM
  5. METOPROLOL TAR [Concomitant]
     Active Substance: METOPROLOL TARTRATE
  6. ASPIRIN. [Concomitant]
     Active Substance: ASPIRIN
  7. ESOMEPRAZOLE DR [Concomitant]
     Active Substance: ESOMEPRAZOLE
  8. PLAVIX [Concomitant]
     Active Substance: CLOPIDOGREL BISULFATE
  9. AMLODIPINE [Concomitant]
     Active Substance: AMLODIPINE BESYLATE

REACTIONS (2)
  - Therapy interrupted [None]
  - Stent placement [None]

NARRATIVE: CASE EVENT DATE: 20201211
